FAERS Safety Report 15856584 (Version 1)
Quarter: 2019Q1

REPORT INFORMATION
  Report Type: Spontaneous
  Country: ES (occurrence: ES)
  Receive Date: 20190123
  Receipt Date: 20190123
  Transmission Date: 20190417
  Serious: Yes (Other)
  Sender: FDA-Public Use
  Company Number: ES-ABBVIE-19S-144-2616529-00

PATIENT
  Age: 75 Year
  Sex: Female
  Weight: 46 kg

DRUGS (4)
  1. METFORMIN [Concomitant]
     Active Substance: METFORMIN HYDROCHLORIDE
     Indication: DIABETES MELLITUS
     Dosage: 15 YEARS BEFORE THE REPORT
  2. DIAMICRON [Concomitant]
     Active Substance: GLICLAZIDE
     Indication: DIABETES MELLITUS
  3. KREON [Suspect]
     Active Substance: PANCRELIPASE
     Indication: PANCREATITIS
     Dosage: 2 DOSAGE FORM, TID (THERAPY DISCONTINUED ON 10-11/DEC/2018)
     Route: 048
     Dates: start: 201811, end: 201812
  4. KREON [Suspect]
     Active Substance: PANCRELIPASE
     Dosage: 2 DOSAGE FORM, QD (NOON)
     Route: 048
     Dates: start: 201901

REACTIONS (2)
  - Intestinal obstruction [Recovered/Resolved]
  - Dyspepsia [Recovered/Resolved]

NARRATIVE: CASE EVENT DATE: 201811
